FAERS Safety Report 9941120 (Version 1)
Quarter: 2014Q1

REPORT INFORMATION
  Report Type: Report from Study
  Country: US (occurrence: US)
  Receive Date: 20140303
  Receipt Date: 20140303
  Transmission Date: 20141002
  Serious: No
  Sender: FDA-Public Use
  Company Number: US-ABBVIE-13P-163-1040740-00

PATIENT
  Age: 48 Year
  Sex: Female

DRUGS (4)
  1. HUMIRA [Suspect]
     Indication: CROHN^S DISEASE
     Dates: start: 20121225, end: 20121225
  2. HUMIRA [Suspect]
     Dates: start: 20130108, end: 20130108
  3. HUMIRA [Suspect]
     Dates: start: 20130122
  4. FLAGYL [Concomitant]
     Indication: CROHN^S DISEASE

REACTIONS (4)
  - Incorrect route of drug administration [Recovered/Resolved]
  - Pain [Unknown]
  - Wrong technique in drug usage process [Recovered/Resolved]
  - Incorrect dose administered [Not Recovered/Not Resolved]
